FAERS Safety Report 16126949 (Version 1)
Quarter: 2019Q1

REPORT INFORMATION
  Report Type: Spontaneous
  Country: FR (occurrence: FR)
  Receive Date: 20190328
  Receipt Date: 20190328
  Transmission Date: 20190418
  Serious: Yes (Other)
  Sender: FDA-Public Use
  Company Number: FR-TEVA-2019-FR-1030516

PATIENT
  Age: 11 Year
  Sex: Male
  Weight: 40.5 kg

DRUGS (3)
  1. ETOPOSIDE. [Suspect]
     Active Substance: ETOPOSIDE
     Indication: OSTEOSARCOMA
     Dosage: 3 UNIQUE SHOTS
     Route: 041
     Dates: start: 20171002, end: 20171005
  2. METHOTREXATE. [Suspect]
     Active Substance: METHOTREXATE
     Indication: OSTEOSARCOMA
     Dosage: 4 UNIQUE SHOTS
     Route: 041
     Dates: start: 20170911, end: 20171023
  3. IFOSFAMIDE EG [Suspect]
     Active Substance: IFOSFAMIDE
     Indication: OSTEOSARCOMA
     Dosage: 3 UNIQUE SHOTS
     Route: 041
     Dates: start: 20171002, end: 20171005

REACTIONS (1)
  - Febrile bone marrow aplasia [Recovered/Resolved]

NARRATIVE: CASE EVENT DATE: 20171011
